FAERS Safety Report 5348605-8 (Version None)
Quarter: 2007Q2

REPORT INFORMATION
  Report Type: 
  Country: None (occurrence: None)
  Receive Date: 20070605
  Receipt Date: 20070524
  Transmission Date: 20071010
  Serious: Yes (Hospitalization)
  Sender: FDA-Public Use
  Company Number: 234265K07USA

PATIENT
  Age: 52 Year
  Sex: Female

DRUGS (6)
  1. REBIF [Suspect]
     Indication: MULTIPLE SCLEROSIS
     Dosage: 44 MCG, 3 IN 1 WEEKS, SUBCUTANEOUS
     Route: 058
     Dates: start: 20030523
  2. LISINOPRIL (LISINOPRIL /00894001/) [Concomitant]
  3. FLUOXETINE (FLUOXETINE /00724401/) [Concomitant]
  4. LEVOTHYROXINE (LEVOTHYROXINE /00587301/) [Concomitant]
  5. ACICLOVIR (ACICLOVIR /00587301/)) [Concomitant]
  6. DETROL [Concomitant]

REACTIONS (1)
  - PANCREATITIS ACUTE [None]
